FAERS Safety Report 5890198-0 (Version None)
Quarter: 2008Q3

REPORT INFORMATION
  Report Type: 
  Country: None (occurrence: None)
  Receive Date: 20080919
  Receipt Date: 20080908
  Transmission Date: 20090109
  Serious: Yes (Hospitalization)
  Sender: FDA-Public Use
  Company Number: SE-PFIZER INC-2008075660

PATIENT
  Sex: Female

DRUGS (5)
  1. LYRICA [Suspect]
     Indication: NEUROSIS
     Dates: start: 20071001
  2. DESOLETT [Suspect]
     Indication: CONTRACEPTION
     Dates: start: 20071201
  3. SERTRALINE [Concomitant]
  4. ATARAX [Concomitant]
  5. IMOVANE [Concomitant]

REACTIONS (1)
  - PULMONARY EMBOLISM [None]
